FAERS Safety Report 23224964 (Version 1)
Quarter: 2023Q4

REPORT INFORMATION
  Report Type: Spontaneous
  Country: US (occurrence: US)
  Receive Date: 20231124
  Receipt Date: 20231124
  Transmission Date: 20240110
  Serious: No
  Sender: FDA-Public Use
  Company Number: US-APOTEX-2023AP013331

PATIENT
  Sex: Male

DRUGS (4)
  1. KETOROLAC TROMETHAMINE [Suspect]
     Active Substance: KETOROLAC TROMETHAMINE
     Indication: Eye inflammation
     Dosage: FOUR DROPS A DAY IN EACH EYE
     Route: 047
     Dates: start: 2022
  2. KETOROLAC TROMETHAMINE [Suspect]
     Active Substance: KETOROLAC TROMETHAMINE
     Dosage: FOUR DROPS A DAY IN EACH EYE
     Route: 047
     Dates: start: 2023
  3. KETOROLAC TROMETHAMINE [Suspect]
     Active Substance: KETOROLAC TROMETHAMINE
     Dosage: FOUR DROPS A DAY IN EACH EYE
     Route: 047
     Dates: start: 2023
  4. PREDNISOLONE [Concomitant]
     Active Substance: PREDNISOLONE
     Indication: Eye inflammation
     Dosage: 8 GTT DROPS, QD
     Route: 047

REACTIONS (7)
  - Product package associated injury [Recovered/Resolved]
  - Product dose omission issue [Unknown]
  - Device safety feature issue [Unknown]
  - Product closure removal difficult [Unknown]
  - Product substitution issue [Unknown]
  - Product packaging issue [Unknown]
  - Product quality issue [Unknown]
